FAERS Safety Report 14106884 (Version 2)
Quarter: 2017Q4

REPORT INFORMATION
  Report Type: Spontaneous
  Country: US (occurrence: US)
  Receive Date: 20171018
  Receipt Date: 20171024
  Transmission Date: 20180321
  Serious: No
  Sender: FDA-Public Use
  Company Number: US-ACTELION-A-US2017-160889

PATIENT
  Age: 74 Year
  Sex: Female
  Weight: 90.7 kg

DRUGS (4)
  1. DILTIAZEM. [Concomitant]
     Active Substance: DILTIAZEM
  2. XANAX [Concomitant]
     Active Substance: ALPRAZOLAM
  3. OPSUMIT [Concomitant]
     Active Substance: MACITENTAN
     Indication: PULMONARY ARTERIAL HYPERTENSION
  4. UPTRAVI [Suspect]
     Active Substance: SELEXIPAG
     Indication: PULMONARY ARTERIAL HYPERTENSION
     Dosage: 200 MCG, BID
     Route: 048
     Dates: start: 20171004, end: 201710

REACTIONS (11)
  - Vision blurred [Unknown]
  - Abdominal discomfort [Unknown]
  - Insomnia [Unknown]
  - Nausea [Unknown]
  - Anxiety [Unknown]
  - Faeces discoloured [Unknown]
  - Decreased appetite [Unknown]
  - Headache [Unknown]
  - Vomiting [Unknown]
  - Tremor [Unknown]
  - Decreased activity [Unknown]

NARRATIVE: CASE EVENT DATE: 20171005
